FAERS Safety Report 6617959-4 (Version None)
Quarter: 2010Q1

REPORT INFORMATION
  Report Type: 
  Country: None (occurrence: None)
  Receive Date: 20100308
  Receipt Date: 20100225
  Transmission Date: 20100710
  Serious: Yes (Other)
  Sender: FDA-Public Use
  Company Number: PHHY2009CA56713

PATIENT
  Sex: Male

DRUGS (12)
  1. RASILEZ [Suspect]
     Indication: HYPERTENSION
     Dosage: 150 MG, UNK
     Route: 048
     Dates: start: 20091028, end: 20100108
  2. ASPIRIN [Concomitant]
     Dosage: 80 MG, UNK
  3. ADALAT [Concomitant]
     Dosage: 60 MG, UNK
  4. MICARDIS HCT [Concomitant]
  5. CRESTOR [Concomitant]
     Dosage: 10 MG, UNK
  6. INSULIN [Concomitant]
  7. CIALIS [Concomitant]
  8. SERAX [Concomitant]
  9. ACCUPRIL [Concomitant]
     Dosage: 20 MG, UNK
  10. NOVORAPID [Concomitant]
  11. NOVOLIN [Concomitant]
  12. CLONAZEPAM [Concomitant]

REACTIONS (4)
  - GYNAECOMASTIA [None]
  - NIPPLE PAIN [None]
  - PRURITUS [None]
  - SENSORY DISTURBANCE [None]
